FAERS Safety Report 8129837 (Version 7)
Quarter: 2013Q4

REPORT INFORMATION
  Report Type: Spontaneous
  Country: US (occurrence: US)
  Receive Date: 20110909
  Receipt Date: 20131121
  Transmission Date: 20140711
  Serious: Yes (Hospitalization)
  Sender: FDA-Public Use
  Company Number: US-B.I. PHARMACEUTICALS,INC./RIDGEFIELD-2011-BP-21420BP

PATIENT
  Age: 80 Year
  Sex: Female
  Weight: 79.38 kg

DRUGS (18)
  1. PRADAXA [Suspect]
     Indication: ATRIAL FIBRILLATION
     Dosage: 300 MG
     Route: 048
     Dates: start: 20101124, end: 20110727
  2. PRADAXA [Suspect]
     Indication: ANTICOAGULANT THERAPY
     Dosage: 300 MG
     Route: 048
     Dates: start: 20110803, end: 20110816
  3. ATACAND [Concomitant]
  4. AVANDIA [Concomitant]
     Dates: start: 2006, end: 2011
  5. EVISTA [Concomitant]
     Dates: start: 2006, end: 2012
  6. GLUCOPHAGE [Concomitant]
     Dates: start: 2007, end: 2011
  7. LASIX [Concomitant]
     Dates: start: 2007, end: 2012
  8. MAG OX [Concomitant]
     Dates: start: 2006, end: 2011
  9. ZAROXOLYN (METOLAZONE) [Concomitant]
     Dates: start: 2007, end: 2012
  10. POTASSIUM [Concomitant]
     Dates: start: 2006, end: 2011
  11. SYNTHROID [Concomitant]
     Dates: start: 2006, end: 2011
  12. CALCIUM [Concomitant]
     Dates: start: 2007, end: 2012
  13. COENZYME Q10 [Concomitant]
     Dates: start: 2007, end: 2012
  14. B12 [Concomitant]
     Indication: VITAMIN B12 DEFICIENCY
  15. PROTONIX [Concomitant]
  16. FERROUS SULFATE [Concomitant]
  17. ATIVAN [Concomitant]
  18. PROAIR [Concomitant]

REACTIONS (8)
  - Gastrointestinal haemorrhage [Unknown]
  - Haemoglobin decreased [Recovered/Resolved]
  - Haemorrhagic anaemia [Not Recovered/Not Resolved]
  - Gastrointestinal haemorrhage [Recovered/Resolved]
  - Gastrooesophageal reflux disease [Unknown]
  - Oropharyngeal pain [Unknown]
  - Aphagia [Unknown]
  - Abdominal discomfort [Unknown]
